FAERS Safety Report 6122625-8 (Version None)
Quarter: 2009Q1

REPORT INFORMATION
  Report Type: 
  Country: None (occurrence: None)
  Receive Date: 20090318
  Receipt Date: 20090313
  Transmission Date: 20090719
  Serious: Yes (Death, Hospitalization)
  Sender: FDA-Public Use
  Company Number: US-CELGENEUS-163-21880-09030941

PATIENT
  Sex: Female

DRUGS (1)
  1. REVLIMID [Suspect]
     Indication: MULTIPLE MYELOMA
     Route: 048
     Dates: start: 20060913

REACTIONS (5)
  - CORONARY ARTERY DISEASE [None]
  - HYPERSENSITIVITY [None]
  - MULTIPLE MYELOMA [None]
  - MYOCARDIAL INFARCTION [None]
  - RESPIRATORY FAILURE [None]
